FAERS Safety Report 15155916 (Version 1)
Quarter: 2018Q3

REPORT INFORMATION
  Report Type: Spontaneous
  Country: AT (occurrence: AT)
  Receive Date: 20180717
  Receipt Date: 20180717
  Transmission Date: 20181010
  Serious: Yes (Hospitalization)
  Sender: FDA-Public Use
  Company Number: AT-US WORLDMEDS, LLC-STA_00019721

PATIENT
  Age: 54 Year
  Sex: Male

DRUGS (8)
  1. LEVODOPA [Suspect]
     Active Substance: LEVODOPA
     Indication: PARKINSON^S DISEASE
     Dosage: 200 MG/D; GRADUALLY INCREASED TO 750 MG/D BY OCT 2007, AND TO 850 MG/D BY JAN 2008
     Route: 065
     Dates: start: 2002
  2. CLONAZEPAM. [Concomitant]
     Active Substance: CLONAZEPAM
     Indication: RAPID EYE MOVEMENTS SLEEP ABNORMAL
     Route: 065
     Dates: start: 200708
  3. QUETIAPINE. [Concomitant]
     Active Substance: QUETIAPINE
     Indication: PSYCHOTIC DISORDER
     Route: 065
     Dates: start: 200804
  4. APOMORPHINE HYDROCHLORIDE [Suspect]
     Active Substance: APOMORPHINE HYDROCHLORIDE
     Indication: PARKINSON^S DISEASE
     Dosage: 90 MG/D; INCREASED TO 93 MG/D IN FEB 2008, DECREASED TO 92 MG/D IN APR 2008
     Route: 058
     Dates: start: 200710, end: 200806
  5. SERTRALINE [Concomitant]
     Active Substance: SERTRALINE HYDROCHLORIDE
     Indication: RAPID EYE MOVEMENTS SLEEP ABNORMAL
     Route: 065
     Dates: start: 200708
  6. MIRTAZAPINE. [Concomitant]
     Active Substance: MIRTAZAPINE
     Indication: DEPRESSION
     Route: 065
     Dates: start: 200708
  7. AMANTADINE. [Suspect]
     Active Substance: AMANTADINE HYDROCHLORIDE
     Indication: PARKINSON^S DISEASE
     Dosage: 300 MG/D; INCREASED TO 350 MG/D IN JAN 2008, DECREASED TO 250 MG/D IN FEB 2008
     Route: 065
     Dates: start: 200710, end: 200804
  8. CLOZAPINE. [Suspect]
     Active Substance: CLOZAPINE
     Indication: PSYCHOTIC DISORDER
     Route: 065
     Dates: start: 2008

REACTIONS (5)
  - Sedation [Unknown]
  - Impulse-control disorder [Recovered/Resolved]
  - Psychotic disorder [Recovered/Resolved]
  - Depression [Unknown]
  - Suicide attempt [Recovering/Resolving]

NARRATIVE: CASE EVENT DATE: 2008
